FAERS Safety Report 12625950 (Version 1)
Quarter: 2016Q3

REPORT INFORMATION
  Report Type: Report from Study
  Country: PH (occurrence: PH)
  Receive Date: 20160805
  Receipt Date: 20160805
  Transmission Date: 20161109
  Serious: Yes (Hospitalization, Other)
  Sender: FDA-Public Use
  Company Number: PHHY2016PH058167

PATIENT
  Age: 63 Year
  Sex: Female

DRUGS (3)
  1. TASIGNA [Suspect]
     Active Substance: NILOTINIB
     Indication: CHRONIC MYELOID LEUKAEMIA
     Dosage: 600 MG, QD
     Route: 048
     Dates: start: 201507, end: 201604
  2. ANAGRELIDE [Concomitant]
     Active Substance: ANAGRELIDE
     Indication: CHRONIC MYELOID LEUKAEMIA
     Route: 065
  3. TASIGNA [Suspect]
     Active Substance: NILOTINIB
     Dosage: 2 CAP BID
     Route: 065

REACTIONS (17)
  - Drug intolerance [Recovered/Resolved]
  - Red blood cell count decreased [Unknown]
  - Myalgia [Recovered/Resolved]
  - Platelet count increased [Recovered/Resolved]
  - Haemoglobin decreased [Unknown]
  - Lymphocyte count decreased [Unknown]
  - Pain [Recovered/Resolved]
  - Thrombocytosis [Recovered/Resolved]
  - Pain in extremity [Recovered/Resolved]
  - Basophil count increased [Unknown]
  - Headache [Recovered/Resolved]
  - Erythromelalgia [Recovered/Resolved]
  - Haematocrit decreased [Unknown]
  - Red cell distribution width increased [Unknown]
  - Monocyte count decreased [Unknown]
  - Pain of skin [Recovered/Resolved]
  - Chronic myeloid leukaemia [Unknown]

NARRATIVE: CASE EVENT DATE: 20151111
